FAERS Safety Report 7658811-5 (Version None)
Quarter: 2011Q3

REPORT INFORMATION
  Report Type: 
  Country: None (occurrence: None)
  Receive Date: 20110805
  Receipt Date: 20110727
  Transmission Date: 20111222
  Serious: Yes (Hospitalization)
  Sender: FDA-Public Use
  Company Number: GB-JNJFOC-20110509893

PATIENT
  Sex: Male
  Weight: 103 kg

DRUGS (3)
  1. INFLIXIMAB, RECOMBINANT [Suspect]
     Indication: RHEUMATOID ARTHRITIS
     Route: 042
     Dates: start: 20030623, end: 20110406
  2. AZATHIOPRINE [Concomitant]
     Dates: start: 20030623
  3. PREDNISOLONE [Suspect]
     Indication: PRODUCT USED FOR UNKNOWN INDICATION

REACTIONS (5)
  - LOWER RESPIRATORY TRACT INFECTION [None]
  - ATRIAL FIBRILLATION [None]
  - PULMONARY CONGESTION [None]
  - HYPERGLYCAEMIA [None]
  - CHEST PAIN [None]
